FAERS Safety Report 14784548 (Version 1)
Quarter: 2018Q2

REPORT INFORMATION
  Report Type: Spontaneous
  Country: US (occurrence: US)
  Receive Date: 20180413
  Receipt Date: 20180413
  Transmission Date: 20180711
  Serious: Yes (Death)
  Sender: FDA-Public Use
  Company Number: None

PATIENT
  Age: 70 Year
  Sex: Female

DRUGS (23)
  1. TRAMADOL HCL [Concomitant]
     Active Substance: TRAMADOL HYDROCHLORIDE
  2. SYNTHROID [Concomitant]
     Active Substance: LEVOTHYROXINE SODIUM
  3. POT CL MICRO [Concomitant]
  4. CARAFATE [Concomitant]
     Active Substance: SUCRALFATE
  5. RANITIDINE INJ [Concomitant]
  6. PROBIOTIC [Concomitant]
     Active Substance: PROBIOTICS NOS
  7. FUROSEMIDE. [Concomitant]
     Active Substance: FUROSEMIDE
  8. ADCIRCA [Concomitant]
     Active Substance: TADALAFIL
  9. MONTELUKAST [Concomitant]
     Active Substance: MONTELUKAST SODIUM
  10. MUCINEX [Concomitant]
     Active Substance: GUAIFENESIN
  11. DEXILANT [Concomitant]
     Active Substance: DEXLANSOPRAZOLE
  12. VITAMIN C [Concomitant]
     Active Substance: ASCORBIC ACID
  13. FERROUS SULF [Concomitant]
     Active Substance: FERROUS SULFATE
  14. FERRIC GLUCO [Concomitant]
  15. ALPHAGAN P [Concomitant]
     Active Substance: BRIMONIDINE TARTRATE
  16. MORPHINE SUL [Concomitant]
     Active Substance: MORPHINE SULFATE
  17. CEVIMELINE. [Concomitant]
     Active Substance: CEVIMELINE
  18. ASPIRIN-81 [Concomitant]
  19. PREDNISONE. [Concomitant]
     Active Substance: PREDNISONE
  20. LATANOPROST SOL [Concomitant]
  21. FLUTICASONE. [Concomitant]
     Active Substance: FLUTICASONE
  22. ADCIRCA [Suspect]
     Active Substance: TADALAFIL
     Indication: PULMONARY ARTERIAL HYPERTENSION
     Dosage: 40 MG QAM PO
     Route: 048
     Dates: start: 20170422, end: 20180405
  23. ACID REDUCER [Concomitant]

REACTIONS (1)
  - Death [None]

NARRATIVE: CASE EVENT DATE: 20180405
